FAERS Safety Report 21570710 (Version 1)
Quarter: 2022Q4

REPORT INFORMATION
  Report Type: Spontaneous
  Country: US (occurrence: US)
  Receive Date: 20221109
  Receipt Date: 20221109
  Transmission Date: 20230113
  Serious: Yes (Hospitalization)
  Sender: FDA-Public Use
  Company Number: US-SA-SAC20221107001274

PATIENT
  Sex: Female

DRUGS (7)
  1. DUPIXENT [Suspect]
     Active Substance: DUPILUMAB
     Indication: Dermatitis atopic
     Dosage: 300 MG, QOW
     Route: 058
  2. LEVOTHYROXINE [Concomitant]
     Active Substance: LEVOTHYROXINE
     Dosage: UNK
  3. CYMBALTA [Concomitant]
     Active Substance: DULOXETINE HYDROCHLORIDE
     Dosage: UNK
  4. DEPAKOTE [Concomitant]
     Active Substance: DIVALPROEX SODIUM
     Dosage: UNK
  5. TRAZODONE HCL [Concomitant]
     Active Substance: TRAZODONE HYDROCHLORIDE
     Dosage: UNK
  6. XANAX [Concomitant]
     Active Substance: ALPRAZOLAM
     Dosage: UNK
  7. CELEXA [Concomitant]
     Active Substance: CITALOPRAM HYDROBROMIDE
     Dosage: UNK

REACTIONS (3)
  - Fear of death [Unknown]
  - Fear of injection [Not Recovered/Not Resolved]
  - Insomnia [Not Recovered/Not Resolved]
